FAERS Safety Report 6633546-6 (Version None)
Quarter: 2010Q1

REPORT INFORMATION
  Report Type: 
  Country: None (occurrence: None)
  Receive Date: 20100312
  Receipt Date: 20100301
  Transmission Date: 20100710
  Serious: Yes (Hospitalization)
  Sender: FDA-Public Use
  Company Number: US-WATSON-2010-02787

PATIENT
  Age: 45 Year
  Sex: Female

DRUGS (1)
  1. FLUOROURACIL [Suspect]
     Indication: CERVICAL DYSPLASIA
     Dosage: OFF AND ON FOR 1 YR

REACTIONS (1)
  - ADENOCARCINOMA [None]
